FAERS Safety Report 8590380-8 (Version None)
Quarter: 2012Q3

REPORT INFORMATION
  Report Type: 
  Country: None (occurrence: None)
  Receive Date: 20120813
  Receipt Date: 20120803
  Transmission Date: 20120928
  Serious: Yes (Hospitalization)
  Sender: FDA-Public Use
  Company Number: BR-ROCHE-1098379

PATIENT
  Sex: Male

DRUGS (8)
  1. ASPIRIN [Concomitant]
     Dates: start: 20070222
  2. CALCIUM CARBONATE [Concomitant]
     Dates: start: 20110707
  3. CALCITRIOL [Concomitant]
     Dates: start: 20110707
  4. OMEPRAZOLE [Concomitant]
     Dates: start: 20070915
  5. CELLCEPT [Suspect]
     Indication: RENAL TRANSPLANT
     Dates: start: 20060205
  6. BELATACEPT [Suspect]
     Indication: RENAL TRANSPLANT
     Dates: start: 20060204
  7. FUROSEMIDE [Concomitant]
     Dates: start: 20080723
  8. PREDNISONE [Suspect]
     Indication: RENAL TRANSPLANT
     Dates: start: 20060206

REACTIONS (2)
  - PNEUMONIA [None]
  - ARTERIOSCLEROSIS CORONARY ARTERY [None]
